FAERS Safety Report 25922762 (Version 1)
Quarter: 2025Q4

REPORT INFORMATION
  Report Type: Spontaneous
  Country: JP (occurrence: JP)
  Receive Date: 20251015
  Receipt Date: 20251015
  Transmission Date: 20260118
  Serious: Yes (Other)
  Sender: MERCK SHARP & DOHME LLC
  Company Number: JP-009507513-2337535

PATIENT
  Age: 72 Year

DRUGS (3)
  1. KEYTRUDA [Suspect]
     Active Substance: PEMBROLIZUMAB
     Route: 041
  2. CARBOPLATIN [Suspect]
     Active Substance: CARBOPLATIN
  3. ABRAXANE [Suspect]
     Active Substance: PACLITAXEL

REACTIONS (2)
  - Lung abscess [Unknown]
  - Hypersensitivity [Unknown]
